FAERS Safety Report 13525021 (Version 1)
Quarter: 2017Q2

REPORT INFORMATION
  Report Type: Spontaneous
  Country: US (occurrence: US)
  Receive Date: 20170508
  Receipt Date: 20170508
  Transmission Date: 20170830
  Serious: No
  Sender: FDA-Public Use
  Company Number: US-ROCHE-1182446

PATIENT
  Age: 56 Year
  Sex: Male

DRUGS (1)
  1. AVASTIN [Suspect]
     Active Substance: BEVACIZUMAB
     Indication: NON-SMALL CELL LUNG CANCER METASTATIC
     Route: 065

REACTIONS (4)
  - Nuclear magnetic resonance imaging brain abnormal [Unknown]
  - Mental status changes [Not Recovered/Not Resolved]
  - Confusional state [Unknown]
  - Speech disorder [Unknown]
